APPROVED DRUG PRODUCT: ULTRAM
Active Ingredient: TRAMADOL HYDROCHLORIDE
Strength: 50MG **Federal Register determination that product was not discontinued or withdrawn for safety or effectiveness reasons**
Dosage Form/Route: TABLET;ORAL
Application: N020281 | Product #002
Applicant: JANSSEN PHARMACEUTICALS INC
Approved: Mar 3, 1995 | RLD: Yes | RS: No | Type: DISCN